FAERS Safety Report 5050974-3 (Version None)
Quarter: 2006Q3

REPORT INFORMATION
  Report Type: 
  Country: None (occurrence: None)
  Receive Date: 20060714
  Receipt Date: 20060712
  Transmission Date: 20061208
  Serious: Yes (Disabling)
  Sender: FDA-Public Use
  Company Number: PHBS2006HR10358

PATIENT
  Age: 67 Year
  Sex: Female
  Weight: 65 kg

DRUGS (2)
  1. DIOVAN [Suspect]
     Indication: HYPERTENSION
     Dosage: 80 MG/DAY
     Route: 048
     Dates: start: 20060603, end: 20060628
  2. CONCOR [Concomitant]
     Dosage: 2.5 MG, UNK

REACTIONS (3)
  - EYELID OEDEMA [None]
  - EYELIDS PRURITUS [None]
  - VISUAL ACUITY REDUCED [None]
